FAERS Safety Report 11191366 (Version 1)
Quarter: 2015Q2

REPORT INFORMATION
  Report Type: Spontaneous
  Country: TW (occurrence: TW)
  Receive Date: 20150616
  Receipt Date: 20150616
  Transmission Date: 20150821
  Serious: Yes (Other)
  Sender: FDA-Public Use
  Company Number: PHHY2015TW070394

PATIENT
  Age: 76 Year
  Sex: Female

DRUGS (2)
  1. IMATINIB [Suspect]
     Active Substance: IMATINIB
     Dosage: 400 MG, QD
     Route: 065
     Dates: start: 201308, end: 201308
  2. IMATINIB [Suspect]
     Active Substance: IMATINIB
     Indication: GASTROINTESTINAL STROMAL TUMOUR
     Dosage: 600 MG, QD
     Route: 065
     Dates: start: 201305, end: 201307

REACTIONS (6)
  - Drug intolerance [Recovered/Resolved]
  - Oedema [Recovered/Resolved]
  - Oedema [Unknown]
  - Myalgia [Recovered/Resolved]
  - Yellow skin [Unknown]
  - Drug intolerance [Unknown]

NARRATIVE: CASE EVENT DATE: 201307
